FAERS Safety Report 12580701 (Version 2)
Quarter: 2016Q3

REPORT INFORMATION
  Report Type: Spontaneous
  Country: DK (occurrence: DK)
  Receive Date: 20160721
  Receipt Date: 20160801
  Transmission Date: 20161109
  Serious: Yes (Disabling, Other)
  Sender: FDA-Public Use
  Company Number: DK-ACTAVIS-2016-15969

PATIENT
  Age: 28 Year
  Sex: Male

DRUGS (9)
  1. VINCRISTINE (UNKNOWN) [Suspect]
     Active Substance: VINCRISTINE
     Indication: EWING^S SARCOMA
     Dosage: 1.5 MG/M2, CYCLICAL; SIX CYCLES D1
     Route: 065
     Dates: end: 201309
  2. VINCRISTINE (UNKNOWN) [Suspect]
     Active Substance: VINCRISTINE
     Dosage: 1.5 MG/M2, CYCLICAL; SIX CYCLES D1
     Route: 065
  3. PREDNISOLONE. [Concomitant]
     Active Substance: PREDNISOLONE
     Indication: ANTIEMETIC SUPPORTIVE CARE
     Dosage: UNK
     Route: 065
     Dates: end: 201309
  4. IFOSFAMIDE. [Suspect]
     Active Substance: IFOSFAMIDE
     Dosage: TWO CYCLES; SINGLE AGENT
     Route: 051
  5. ETOPOSIDE. [Suspect]
     Active Substance: ETOPOSIDE
     Indication: EWING^S SARCOMA
     Dosage: 150 MG/M2, CYCLICAL;SIX CYCLES; D 1-3
     Route: 065
     Dates: end: 201309
  6. ACTINOMYCIN D [Suspect]
     Active Substance: DACTINOMYCIN
     Indication: EWING^S SARCOMA
     Dosage: 0.75 MG/M2, CYCLICAL; SIX CYCLES; D 1?2
     Route: 065
     Dates: end: 201309
  7. IFOSFAMIDE. [Suspect]
     Active Substance: IFOSFAMIDE
     Dosage: 3 MG/M2, CYCLICAL; , 6 CYCLES3  D1-2
     Route: 065
  8. DOXORUBICIN (UNKNOWN) [Suspect]
     Active Substance: DOXORUBICIN
     Indication: EWING^S SARCOMA
     Dosage: SIX CYCLES;D 1-3
     Route: 065
     Dates: end: 201309
  9. IFOSFAMIDE. [Suspect]
     Active Substance: IFOSFAMIDE
     Indication: EWING^S SARCOMA
     Dosage: 3 MG/M2, CYCLICAL; , 6 CYCLES3  D1-3
     Route: 065
     Dates: end: 201309

REACTIONS (1)
  - Osteonecrosis [Recovering/Resolving]

NARRATIVE: CASE EVENT DATE: 201401
